FAERS Safety Report 18965723 (Version 1)
Quarter: 2021Q1

REPORT INFORMATION
  Report Type: Report from Study
  Country: US (occurrence: US)
  Receive Date: 20210304
  Receipt Date: 20210304
  Transmission Date: 20210420
  Serious: No
  Sender: FDA-Public Use
  Company Number: US-ACADIA PHARMACEUTICALS INC.-ACA-2021-PIM-000530

PATIENT
  Sex: Female

DRUGS (11)
  1. BENZTROPINE [BENZATROPINE] [Concomitant]
     Active Substance: BENZTROPINE
  2. CEPACOL SORE THROAT [DYCLONINE HYDROCHLORIDE] [Concomitant]
  3. CHLORTHALIDON [Concomitant]
     Active Substance: CHLORTHALIDONE
  4. LOSARTAN POTASSIUM. [Concomitant]
     Active Substance: LOSARTAN POTASSIUM
  5. DESVENLAFAXINE. [Concomitant]
     Active Substance: DESVENLAFAXINE
  6. LORAZEPAM. [Concomitant]
     Active Substance: LORAZEPAM
  7. VALPROIC ACID [VALPROATE SODIUM] [Concomitant]
     Active Substance: VALPROATE SODIUM
  8. NUPLAZID [Suspect]
     Active Substance: PIMAVANSERIN TARTRATE
     Indication: PARKINSON^S DISEASE
     Dosage: 34 MILLIGRAM, QD
     Route: 048
     Dates: start: 20210114
  9. PREMPRO [Concomitant]
     Active Substance: ESTROGENS, CONJUGATED\MEDROXYPROGESTERONE ACETATE
  10. ARIPIPRAZOLE. [Concomitant]
     Active Substance: ARIPIPRAZOLE
  11. ROSUVASTIN [Concomitant]
     Active Substance: ROSUVASTATIN

REACTIONS (1)
  - Hallucination [Not Recovered/Not Resolved]
